FAERS Safety Report 13010012 (Version 1)
Quarter: 2016Q4

REPORT INFORMATION
  Report Type: Report from Study
  Country: CA (occurrence: CA)
  Receive Date: 20161208
  Receipt Date: 20161208
  Transmission Date: 20170207
  Serious: Yes (Hospitalization)
  Sender: FDA-Public Use
  Company Number: CA-KADMON PHARMACEUTICALS, LLC-KAD201612-004439

PATIENT
  Sex: Male
  Weight: 87.2 kg

DRUGS (10)
  1. MORPHINE [Concomitant]
     Active Substance: MORPHINE
  2. STATEX [Concomitant]
     Active Substance: MORPHINE SULFATE
  3. RIBAVIRIN 600 MG TABLETS [Suspect]
     Active Substance: RIBAVIRIN
     Indication: CHRONIC HEPATITIS C
     Route: 048
     Dates: start: 20161029
  4. HOLKIRA PAK [Suspect]
     Active Substance: DASABUVIR\OMBITASVIR\PARITAPREVIR\RITONAVIR
     Indication: CHRONIC HEPATITIS C
     Dosage: 2X 12.5/75/50 MG TABLETS ONCE DAILY AND 1X 250 MG TABLET TWICE DAILY
     Route: 048
     Dates: start: 20161029
  5. TECTA [Concomitant]
     Active Substance: PANTOPRAZOLE MAGNESIUM
  6. ZOFRAN [Concomitant]
     Active Substance: ONDANSETRON HYDROCHLORIDE
  7. MIRTAZAPINE. [Concomitant]
     Active Substance: MIRTAZAPINE
  8. ZOPICLONE [Concomitant]
     Active Substance: ZOPICLONE
  9. LACTULOSE. [Concomitant]
     Active Substance: LACTULOSE
  10. PIPTAZOCIN (PIP/TAZO) [Concomitant]

REACTIONS (4)
  - Hepatic encephalopathy [Unknown]
  - Peritonitis bacterial [Unknown]
  - Ascites [Unknown]
  - Hepatic failure [Unknown]
